FAERS Safety Report 8829781 (Version 1)
Quarter: 2012Q4

REPORT INFORMATION
  Report Type: 
  Country: DE (occurrence: DE)
  Receive Date: 20121008
  Receipt Date: 20121008
  Transmission Date: 20130627
  Serious: Yes (Hospitalization)
  Sender: FDA-Public Use
  Company Number: DE-ROCHE-1085971

PATIENT
  Age: 15 Year
  Sex: Female
  Weight: 90 kg

DRUGS (8)
  1. XOLAIR [Suspect]
     Indication: ASTHMA
     Dosage: 300/450 mg
     Route: 065
     Dates: start: 201012
  2. XOLAIR [Suspect]
     Indication: ASTHMA
     Dosage: 300/450 mg
     Route: 065
     Dates: start: 20110531
  3. XOLAIR [Suspect]
     Dosage: 300/450 mg
     Route: 065
     Dates: start: 2012
  4. XOLAIR [Suspect]
     Route: 065
     Dates: start: 20110614
  5. XOLAIR [Suspect]
     Dosage: 300/450 mg
     Route: 065
     Dates: start: 20120605
  6. VIANI [Concomitant]
     Dosage: 50/250 mg 1 puff
     Route: 065
     Dates: start: 2008
  7. CETIRIZINE [Concomitant]
     Dosage: daily one puff
     Route: 065
     Dates: start: 2008
  8. SALBUTAMOL [Concomitant]
     Dosage: dose of 1 puff 2-5x per day
     Route: 065
     Dates: start: 2008

REACTIONS (7)
  - Anaphylactic reaction [Recovered/Resolved]
  - Dyspnoea [Recovered/Resolved]
  - Anxiety [Recovered/Resolved]
  - Facial pain [Unknown]
  - Influenza like illness [Unknown]
  - Eye discharge [Unknown]
  - Headache [Unknown]
